FAERS Safety Report 11081152 (Version 1)
Quarter: 2015Q2

REPORT INFORMATION
  Report Type: Spontaneous
  Country: US (occurrence: None)
  Receive Date: 20150430
  Receipt Date: 20150430
  Transmission Date: 20150821
  Serious: Yes (Hospitalization)
  Sender: FDA-Public Use
  Company Number: None

PATIENT
  Age: 51 Year
  Sex: Male
  Weight: 78.4 kg

DRUGS (2)
  1. CISPLATIN. [Suspect]
     Active Substance: CISPLATIN
     Indication: STOMATITIS
     Dates: end: 20150407
  2. CISPLATIN. [Suspect]
     Active Substance: CISPLATIN
     Indication: FEBRILE NEUTROPENIA
     Dates: end: 20150407

REACTIONS (6)
  - Nausea [None]
  - Mucosal inflammation [None]
  - Fatigue [None]
  - Dermatitis [None]
  - Febrile neutropenia [None]
  - Toxicity to various agents [None]

NARRATIVE: CASE EVENT DATE: 20150412
